FAERS Safety Report 11664288 (Version 1)
Quarter: 2015Q4

REPORT INFORMATION
  Report Type: Spontaneous
  Country: US (occurrence: None)
  Receive Date: 20151026
  Receipt Date: 20151026
  Transmission Date: 20160304
  Serious: No
  Sender: FDA-Public Use
  Company Number: None

PATIENT
  Age: 65 Year
  Sex: Female
  Weight: 56.7 kg

DRUGS (5)
  1. LEVAQUIN [Suspect]
     Active Substance: LEVOFLOXACIN
     Indication: PNEUMONIA
     Route: 048
     Dates: start: 20150914, end: 20150920
  2. GUMMY FIBRES [Concomitant]
  3. PROBIOTIC [Concomitant]
     Active Substance: PROBIOTICS NOS
  4. ALEVE [Concomitant]
     Active Substance: NAPROXEN SODIUM
  5. TUMERIC [Concomitant]
     Active Substance: TURMERIC

REACTIONS (3)
  - Tendon disorder [None]
  - Musculoskeletal pain [None]
  - Pain [None]

NARRATIVE: CASE EVENT DATE: 20150922
